FAERS Safety Report 18010962 (Version 3)
Quarter: 2020Q3

REPORT INFORMATION
  Report Type: Report from Study
  Country: ZA (occurrence: ZA)
  Receive Date: 20200710
  Receipt Date: 20200926
  Transmission Date: 20201103
  Serious: Yes (Other)
  Sender: FDA-Public Use
  Company Number: NVSC2020ZA186679

PATIENT
  Sex: Female

DRUGS (1)
  1. COSENTYX [Suspect]
     Active Substance: SECUKINUMAB
     Indication: ANKYLOSING SPONDYLITIS
     Dosage: 150 MG, QW
     Route: 058
     Dates: start: 20200605, end: 20200904

REACTIONS (5)
  - Urinary tract infection [Unknown]
  - Kidney infection [Unknown]
  - Menstrual disorder [Unknown]
  - Cystitis [Unknown]
  - Stomatitis [Unknown]
